FAERS Safety Report 19360010 (Version 1)
Quarter: 2021Q2

REPORT INFORMATION
  Report Type: Spontaneous
  Country: US (occurrence: US)
  Receive Date: 20210601
  Receipt Date: 20210601
  Transmission Date: 20210717
  Serious: No
  Sender: FDA-Public Use
  Company Number: US-RECORDATI RARE DISEASE INC.-2020005652

PATIENT

DRUGS (7)
  1. LUTATHERA [Suspect]
     Active Substance: LUTETIUM OXODOTREOTIDE LU-177
     Indication: PRODUCT USED FOR UNKNOWN INDICATION
     Dosage: UNK
     Route: 065
  2. PASIREOTIDE LAR [Suspect]
     Active Substance: PASIREOTIDE
     Indication: PRODUCT USE IN UNAPPROVED INDICATION
  3. DIAZOXIDE [Suspect]
     Active Substance: DIAZOXIDE
     Indication: PRODUCT USED FOR UNKNOWN INDICATION
     Dosage: UNK
     Route: 065
  4. PASIREOTIDE LAR [Suspect]
     Active Substance: PASIREOTIDE
     Indication: INSULINOMA
     Dosage: UNK
     Route: 065
     Dates: start: 20191202
  5. PASIREOTIDE LAR [Suspect]
     Active Substance: PASIREOTIDE
     Indication: OFF LABEL USE
  6. AFINITOR [Suspect]
     Active Substance: EVEROLIMUS
     Indication: PRODUCT USED FOR UNKNOWN INDICATION
     Dosage: UNK
     Route: 065
  7. OCTREOTIDE. [Suspect]
     Active Substance: OCTREOTIDE
     Indication: PRODUCT USED FOR UNKNOWN INDICATION
     Dosage: UNK
     Route: 065

REACTIONS (4)
  - Product use in unapproved indication [Recovered/Resolved]
  - Therapy non-responder [Recovered/Resolved]
  - Off label use [Recovered/Resolved]
  - Hypoglycaemia [Unknown]
